FAERS Safety Report 20368303 (Version 2)
Quarter: 2022Q1

REPORT INFORMATION
  Report Type: Spontaneous
  Country: DE (occurrence: DE)
  Receive Date: 20220124
  Receipt Date: 20220124
  Transmission Date: 20220424
  Serious: Yes (Other)
  Sender: FDA-Public Use
  Company Number: DE-ABBVIE-22K-062-4245159-00

PATIENT
  Age: 55 Year
  Sex: Female

DRUGS (3)
  1. UPADACITINIB [Suspect]
     Active Substance: UPADACITINIB
     Indication: Axial spondyloarthritis
     Route: 048
     Dates: start: 2021
  2. UPADACITINIB [Suspect]
     Active Substance: UPADACITINIB
     Indication: Systemic lupus erythematosus
  3. CORTISONE ACETATE [Concomitant]
     Active Substance: CORTISONE ACETATE
     Indication: Product used for unknown indication

REACTIONS (1)
  - Intestinal infarction [Unknown]
